FAERS Safety Report 6809545-8 (Version None)
Quarter: 2010Q2

REPORT INFORMATION
  Report Type: 
  Country: None (occurrence: None)
  Receive Date: 20100630
  Receipt Date: 20100617
  Transmission Date: 20101027
  Serious: Yes (Hospitalization, Other)
  Sender: FDA-Public Use
  Company Number: PHFR2010GB00730

PATIENT
  Sex: Male

DRUGS (2)
  1. CLOZARIL [Suspect]
     Indication: SCHIZOPHRENIA
     Dosage: UNK
     Route: 048
     Dates: start: 20081112
  2. ARIPIPRAZOLE [Concomitant]

REACTIONS (5)
  - DIABETES MELLITUS [None]
  - MYOCARDIAL INFARCTION [None]
  - OVERWEIGHT [None]
  - STENT PLACEMENT [None]
  - TACHYCARDIA [None]
